FAERS Safety Report 10723083 (Version 1)
Quarter: 2015Q1

REPORT INFORMATION
  Report Type: Spontaneous
  Country: FR (occurrence: FR)
  Receive Date: 20150120
  Receipt Date: 20150120
  Transmission Date: 20150721
  Serious: Yes (Hospitalization)
  Sender: FDA-Public Use
  Company Number: FR-ELI_LILLY_AND_COMPANY-FR201501002521

PATIENT
  Age: 69 Year
  Sex: Male
  Weight: 56 kg

DRUGS (10)
  1. ATARAX [Concomitant]
     Active Substance: HYDROXYZINE\HYDROXYZINE HYDROCHLORIDE
     Dosage: 25 MG, PRN
     Route: 065
  2. NORMACOL                           /06843301/ [Concomitant]
     Dosage: UNK, PRN
     Route: 065
  3. PLAVIX [Concomitant]
     Active Substance: CLOPIDOGREL BISULFATE
     Dosage: 75 MG, QD
     Route: 065
  4. MOVICOL [Concomitant]
     Active Substance: POLYETHYLENE GLYCOL 3350\POTASSIUM CHLORIDE\SODIUM BICARBONATE\SODIUM CHLORIDE
     Dosage: UNK, BID
     Route: 048
  5. LERCAN [Concomitant]
     Active Substance: LERCANIDIPINE
     Dosage: 10 MG, EACH EVENING
     Route: 065
  6. CYMBALTA [Suspect]
     Active Substance: DULOXETINE HYDROCHLORIDE
     Indication: DEPRESSION
     Dosage: 60 MG, QD
     Route: 048
     Dates: end: 20140912
  7. LOXAPAC /00401802/ [Suspect]
     Active Substance: LOXAPINE SUCCINATE
     Indication: AGITATION
     Dosage: UNK, UNKNOWN
     Route: 030
  8. VFEND [Suspect]
     Active Substance: VORICONAZOLE
     Indication: CANDIDA INFECTION
     Dosage: 500 MG, UNKNOWN
     Route: 048
     Dates: start: 201404, end: 20140912
  9. INEXIUM                            /01479302/ [Suspect]
     Active Substance: ESOMEPRAZOLE MAGNESIUM
     Indication: PRODUCT USED FOR UNKNOWN INDICATION
     Dosage: 40 MG, UNKNOWN
     Route: 048
     Dates: end: 20140916
  10. TAHOR [Concomitant]
     Active Substance: ATORVASTATIN CALCIUM
     Dosage: 10 MG, EACH EVENING
     Route: 065

REACTIONS (5)
  - Encephalopathy [Recovering/Resolving]
  - Cerebellar syndrome [None]
  - Cerebral atrophy [None]
  - Myoclonus [None]
  - Tremor [None]

NARRATIVE: CASE EVENT DATE: 20140911
